FAERS Safety Report 6140147-5 (Version None)
Quarter: 2009Q2

REPORT INFORMATION
  Report Type: 
  Country: None (occurrence: None)
  Receive Date: 20090401
  Receipt Date: 20090330
  Transmission Date: 20091009
  Serious: Yes (Hospitalization, Other)
  Sender: FDA-Public Use
  Company Number: CA-BRISTOL-MYERS SQUIBB COMPANY-13526215

PATIENT
  Age: 62 Year
  Sex: Male
  Weight: 66 kg

DRUGS (12)
  1. CETUXIMAB [Suspect]
     Indication: HEAD AND NECK CANCER
     Dosage: STARTED ON 07AUG06.
     Route: 040
     Dates: start: 20060925, end: 20060925
  2. CISPLATIN [Suspect]
     Indication: HEAD AND NECK CANCER
     Dosage: STARTED ON 07AUG06.
     Dates: start: 20060911, end: 20060911
  3. RADIOTHERAPY [Suspect]
     Indication: HEAD AND NECK CANCER
     Dosage: NUMBER OF FRACTIONS:35;NUMBER OF ELAPSED DAYS:11;1 DOSAGE FORM=7000PTV
     Dates: start: 20060922, end: 20060922
  4. BACTROBAN [Concomitant]
     Route: 061
  5. DILAUDID [Concomitant]
     Route: 048
  6. POTASSIUM CHLORIDE [Concomitant]
     Route: 048
  7. MAGNESIUM CHLORIDE [Concomitant]
     Route: 042
  8. MAGNESIUM-ROUGIER [Concomitant]
  9. NEUPOGEN [Concomitant]
  10. TYLENOL [Concomitant]
     Route: 048
  11. IMIPENEM [Concomitant]
     Route: 042
  12. MAXERAN [Concomitant]

REACTIONS (8)
  - ANAEMIA [None]
  - FEBRILE NEUTROPENIA [None]
  - HAEMOGLOBIN [None]
  - HYPOMAGNESAEMIA [None]
  - MUCOSAL INFLAMMATION [None]
  - PYREXIA [None]
  - RASH [None]
  - WHITE BLOOD CELL COUNT DECREASED [None]
